FAERS Safety Report 18224490 (Version 1)
Quarter: 2020Q3

REPORT INFORMATION
  Report Type: Spontaneous
  Country: US (occurrence: US)
  Receive Date: 20200902
  Receipt Date: 20200902
  Transmission Date: 20201103
  Serious: No
  Sender: FDA-Public Use
  Company Number: US-PURDUE-USA-2020-0153655

PATIENT

DRUGS (1)
  1. OXYCODONE/ ACETAMINOPHEN TABLETS [Suspect]
     Active Substance: ACETAMINOPHEN\OXYCODONE HYDROCHLORIDE
     Indication: PRODUCT USED FOR UNKNOWN INDICATION
     Dosage: UNK
     Route: 048
     Dates: start: 202005

REACTIONS (5)
  - Loss of personal independence in daily activities [Unknown]
  - Illness [Unknown]
  - Nausea [Unknown]
  - Dizziness [Unknown]
  - Dyspepsia [Unknown]

NARRATIVE: CASE EVENT DATE: 202005
